FAERS Safety Report 9537820 (Version 1)
Quarter: 2013Q3

REPORT INFORMATION
  Report Type: Spontaneous
  Country: FR (occurrence: FR)
  Receive Date: 20130919
  Receipt Date: 20130919
  Transmission Date: 20140515
  Serious: Yes (Other)
  Sender: FDA-Public Use
  Company Number: PHHY2013FR103897

PATIENT
  Age: 84 Year
  Sex: Female

DRUGS (1)
  1. ACLASTA [Suspect]
     Indication: OSTEOPOROTIC FRACTURE
     Dosage: UNK UKN, UNK
     Route: 042
     Dates: start: 20120319

REACTIONS (4)
  - Dysphagia [Recovered/Resolved]
  - Oral pain [Recovered/Resolved]
  - Laryngeal oedema [Recovered/Resolved]
  - Oesophagitis [Recovered/Resolved]
